FAERS Safety Report 7609315-7 (Version None)
Quarter: 2011Q3

REPORT INFORMATION
  Report Type: 
  Country: None (occurrence: None)
  Receive Date: 20110714
  Receipt Date: 20110706
  Transmission Date: 20111222
  Serious: Yes (Other)
  Sender: FDA-Public Use
  Company Number: JP-BAYER-2011-058975

PATIENT
  Age: 43 Year
  Sex: Female

DRUGS (4)
  1. SYNPHASE [Concomitant]
     Dosage: UNK
     Route: 048
  2. GLUCOSE [Concomitant]
     Indication: IRON DEFICIENCY ANAEMIA
     Dosage: DAILY DOSE 20 ML
     Route: 042
     Dates: start: 20110608
  3. YAZ [Suspect]
     Indication: ENDOMETRIAL HYPERPLASIA
     Dosage: 1 DF, QD
     Route: 048
     Dates: start: 20110301
  4. FERROUS SULFATE TAB [Concomitant]
     Indication: IRON DEFICIENCY ANAEMIA
     Dosage: DAILY DOSE 1 DF
     Route: 042
     Dates: start: 20110608

REACTIONS (5)
  - LARYNGEAL OEDEMA [None]
  - HYPOAESTHESIA ORAL [None]
  - DYSPHONIA [None]
  - ABDOMINAL PAIN UPPER [None]
  - FEELING ABNORMAL [None]
